FAERS Safety Report 7809307-9 (Version None)
Quarter: 2011Q4

REPORT INFORMATION
  Report Type: 
  Country: None (occurrence: None)
  Receive Date: 20111012
  Receipt Date: 20111010
  Transmission Date: 20120403
  Serious: No
  Sender: FDA-Public Use
  Company Number: US-TEVA-304468USA

PATIENT
  Sex: Male
  Weight: 86.26 kg

DRUGS (1)
  1. PROAIR HFA [Suspect]
     Indication: EMPHYSEMA
     Route: 055
     Dates: start: 20111006

REACTIONS (1)
  - DRUG INEFFECTIVE [None]
